FAERS Safety Report 19668431 (Version 1)
Quarter: 2021Q3

REPORT INFORMATION
  Report Type: Spontaneous
  Country: MA (occurrence: MA)
  Receive Date: 20210806
  Receipt Date: 20210806
  Transmission Date: 20211014
  Serious: Yes (Death, Disabling)
  Sender: FDA-Public Use
  Company Number: MA-PFIZER INC-2020510258

PATIENT
  Age: 62 Year
  Sex: Male

DRUGS (2)
  1. INLYTA [Suspect]
     Active Substance: AXITINIB
     Dosage: 5 MG, 2X/DAY
     Route: 048
     Dates: start: 202010, end: 20201118
  2. INLYTA [Suspect]
     Active Substance: AXITINIB
     Dosage: 5 MG, 1X/DAY

REACTIONS (12)
  - Rash [Recovered/Resolved]
  - Vomiting [Unknown]
  - Inflammation [Unknown]
  - Erythema [Unknown]
  - Nausea [Unknown]
  - Death [Fatal]
  - Oedema [Recovered/Resolved]
  - Plantar erythema [Unknown]
  - Feeling hot [Unknown]
  - Diarrhoea [Recovered/Resolved]
  - Dysphonia [Unknown]
  - Decreased appetite [Unknown]

NARRATIVE: CASE EVENT DATE: 202107
